FAERS Safety Report 8376042-0 (Version None)
Quarter: 2012Q2

REPORT INFORMATION
  Report Type: 
  Country: None (occurrence: None)
  Receive Date: 20120522
  Receipt Date: 20120515
  Transmission Date: 20120825
  Serious: Yes (Other)
  Sender: FDA-Public Use
  Company Number: PHHY2012BR029080

PATIENT
  Sex: Female

DRUGS (4)
  1. ATENOLOL [Concomitant]
     Indication: CARDIAC DISORDER
     Dosage: 1 DF, A DAY
     Route: 048
  2. SOMALGIN [Concomitant]
     Dosage: 1 DF, A DAY
     Dates: start: 20120201
  3. EXFORGE [Suspect]
     Indication: HYPERTENSION
     Dosage: 1 DF (VALS 160 MG, AMLO 05 MG), A DAY
     Route: 048
  4. CLOPIDOGREL [Concomitant]
     Dosage: 1 DF, A DAY
     Route: 048

REACTIONS (5)
  - CATARACT [None]
  - DISORDER OF GLOBE [None]
  - THYROID DISORDER [None]
  - HYPERTHYROIDISM [None]
  - VISUAL ACUITY REDUCED [None]
